FAERS Safety Report 12909523 (Version 1)
Quarter: 2016Q4

REPORT INFORMATION
  Report Type: Report from Study
  Country: NL (occurrence: NL)
  Receive Date: 20161104
  Receipt Date: 20161104
  Transmission Date: 20170207
  Serious: Yes (Other)
  Sender: FDA-Public Use
  Company Number: NL-ROCHE-1849702

PATIENT

DRUGS (4)
  1. UROKINASE [Suspect]
     Active Substance: UROKINASE
     Indication: ISCHAEMIC STROKE
     Route: 065
  2. HEPARIN [Suspect]
     Active Substance: HEPARIN SODIUM
     Indication: ISCHAEMIC STROKE
     Route: 065
  3. ALTEPLASE [Suspect]
     Active Substance: ALTEPLASE
     Indication: ISCHAEMIC STROKE
     Route: 065
  4. ABCIXIMAB [Suspect]
     Active Substance: ABCIXIMAB
     Indication: ISCHAEMIC STROKE
     Route: 065

REACTIONS (8)
  - Haemorrhagic transformation stroke [Unknown]
  - Haemorrhage [Unknown]
  - Injection site extravasation [Unknown]
  - Haematoma [Unknown]
  - Cerebrovascular accident [Unknown]
  - Haemorrhage intracranial [Unknown]
  - Cerebral haemorrhage [Unknown]
  - Arterial spasm [Unknown]
